FAERS Safety Report 22827996 (Version 9)
Quarter: 2024Q3

REPORT INFORMATION
  Report Type: Spontaneous
  Country: US (occurrence: US)
  Receive Date: 20230816
  Receipt Date: 20240930
  Transmission Date: 20241017
  Serious: No
  Sender: PFIZER
  Company Number: US-PFIZER INC-PV202200087346

PATIENT
  Age: 85 Year
  Sex: Female

DRUGS (1)
  1. IBRANCE [Suspect]
     Active Substance: PALBOCICLIB
     Indication: Neoplasm malignant
     Dosage: 100 MG, CYCLIC  (TAKE 1 TABLET BY MOUTH DAYS 1-21 DAYS OUT OF A 28 DAY CYCLE)
     Route: 048

REACTIONS (4)
  - Neoplasm progression [Not Recovered/Not Resolved]
  - Fall [Unknown]
  - Viral infection [Unknown]
  - White blood cell count decreased [Unknown]

NARRATIVE: CASE EVENT DATE: 20240101
